FAERS Safety Report 8572960-9 (Version None)
Quarter: 2012Q3

REPORT INFORMATION
  Report Type: 
  Country: None (occurrence: None)
  Receive Date: 20120806
  Receipt Date: 20120302
  Transmission Date: 20120928
  Serious: No
  Sender: FDA-Public Use
  Company Number: US-009507513-2012SP008902

PATIENT

DRUGS (3)
  1. CORICIDIN II COUGH AND COLD [Suspect]
     Indication: UPPER RESPIRATORY TRACT CONGESTION
  2. CORICIDIN II COUGH AND COLD [Suspect]
     Indication: RHINORRHOEA
  3. CORICIDIN II COUGH AND COLD [Suspect]
     Indication: HEADACHE
     Dosage: 1 DF, BID
     Route: 048
     Dates: start: 20120201

REACTIONS (1)
  - NASAL DRYNESS [None]
